FAERS Safety Report 24357327 (Version 1)
Quarter: 2024Q3

REPORT INFORMATION
  Report Type: Spontaneous
  Country: IE (occurrence: IE)
  Receive Date: 20240924
  Receipt Date: 20240924
  Transmission Date: 20241016
  Serious: Yes (Life-Threatening, Other)
  Sender: JOHNSON AND JOHNSON
  Company Number: IE-JNJFOC-A-CH2003-03900

PATIENT
  Age: 23 Year
  Sex: Female

DRUGS (7)
  1. TRACLEER [Suspect]
     Active Substance: BOSENTAN
     Indication: Pulmonary hypertension
     Dosage: 62.5 MG, BID
     Route: 048
     Dates: start: 20021101, end: 20021105
  2. TRACLEER [Suspect]
     Active Substance: BOSENTAN
     Dosage: 125 MG, BID
     Route: 048
     Dates: start: 20021106, end: 20030306
  3. TRACLEER [Suspect]
     Active Substance: BOSENTAN
     Dosage: 62.5 MG, BID
     Route: 048
     Dates: start: 20030307, end: 20030716
  4. TRACLEER [Suspect]
     Active Substance: BOSENTAN
     Dosage: 125 MG, BID
     Route: 048
     Dates: start: 20030717
  5. OXYGEN [Concomitant]
     Active Substance: OXYGEN
  6. LACTULOSE [Concomitant]
     Active Substance: LACTULOSE
  7. ASPIRIN [Concomitant]
     Active Substance: ASPIRIN

REACTIONS (10)
  - Pregnancy [Unknown]
  - Premature baby [Unknown]
  - Condition aggravated [Unknown]
  - Oxygen saturation decreased [Unknown]
  - Supraventricular tachycardia [Unknown]
  - Foetal hypokinesia [Unknown]
  - Caesarean section [Unknown]
  - Female sterilisation [Unknown]
  - Dyspnoea [Unknown]
  - Contraindicated product administered [Unknown]

NARRATIVE: CASE EVENT DATE: 20030711
